FAERS Safety Report 6763393-6 (Version None)
Quarter: 2010Q2

REPORT INFORMATION
  Report Type: 
  Country: None (occurrence: None)
  Receive Date: 20100610
  Receipt Date: 20100604
  Transmission Date: 20101027
  Serious: Yes (Other)
  Sender: FDA-Public Use
  Company Number: US-BAYER-200930534NA

PATIENT
  Age: 46 Year
  Sex: Male

DRUGS (3)
  1. BETASERON [Suspect]
     Indication: MULTIPLE SCLEROSIS
     Dosage: TOTAL DAILY DOSE: 2 MIU
     Route: 058
     Dates: start: 20090812
  2. BETASERON [Suspect]
     Dosage: TOTAL DAILY DOSE: 6 MIU
     Route: 058
  3. BETASERON [Suspect]
     Dosage: TOTAL DAILY DOSE: 8 MIU
     Route: 058

REACTIONS (11)
  - COORDINATION ABNORMAL [None]
  - DEPRESSION [None]
  - DISTURBANCE IN ATTENTION [None]
  - DIZZINESS [None]
  - HEAD DISCOMFORT [None]
  - INJECTION SITE PAIN [None]
  - INJECTION SITE REACTION [None]
  - LOSS OF EMPLOYMENT [None]
  - NIPPLE PAIN [None]
  - SUICIDAL IDEATION [None]
  - TENSION [None]
